FAERS Safety Report 19172745 (Version 1)
Quarter: 2021Q2

REPORT INFORMATION
  Report Type: Spontaneous
  Country: CA (occurrence: CA)
  Receive Date: 20210423
  Receipt Date: 20210423
  Transmission Date: 20210717
  Serious: Yes (Other)
  Sender: FDA-Public Use
  Company Number: CA-NOVOPROD-804095

PATIENT
  Sex: Female

DRUGS (2)
  1. SAXENDA [Suspect]
     Active Substance: LIRAGLUTIDE
     Dosage: 1.9
     Route: 065
     Dates: end: 20210412
  2. SAXENDA [Suspect]
     Active Substance: LIRAGLUTIDE
     Indication: PRODUCT USED FOR UNKNOWN INDICATION
     Dosage: 0.6
     Route: 065
     Dates: start: 20210410

REACTIONS (5)
  - Inappropriate schedule of product administration [Unknown]
  - Abdominal pain upper [Unknown]
  - Rash [Unknown]
  - Eructation [Unknown]
  - Product dispensing error [Unknown]
